FAERS Safety Report 23297245 (Version 1)
Quarter: 2023Q4

REPORT INFORMATION
  Report Type: Report from Study
  Country: US (occurrence: US)
  Receive Date: 20231214
  Receipt Date: 20231214
  Transmission Date: 20240110
  Serious: No
  Sender: FDA-Public Use
  Company Number: US-SA-2018SA166329

PATIENT
  Age: 54 Year
  Sex: Female

DRUGS (5)
  1. ASPERCREME NOS [Suspect]
     Active Substance: MENTHOL\TROLAMINE SALICYLATE
     Indication: Product used for unknown indication
  2. CAPSAICIN [Suspect]
     Active Substance: CAPSAICIN
     Indication: Product used for unknown indication
     Route: 061
  3. LIDOCAINE [Suspect]
     Active Substance: LIDOCAINE
     Indication: Product used for unknown indication
     Route: 061
  4. ICY HOT (MENTHOL) [Suspect]
     Active Substance: MENTHOL
     Indication: Product used for unknown indication
  5. ICY HOT [Suspect]
     Active Substance: MENTHOL\METHYL SALICYLATE
     Indication: Product used for unknown indication

REACTIONS (2)
  - Burning sensation [Unknown]
  - Drug ineffective [Unknown]
